FAERS Safety Report 5690896-8 (Version None)
Quarter: 2008Q2

REPORT INFORMATION
  Report Type: 
  Country: None (occurrence: None)
  Receive Date: 20080401
  Receipt Date: 20080327
  Transmission Date: 20081010
  Serious: Yes (Hospitalization)
  Sender: FDA-Public Use
  Company Number: FR-ASTRAZENECA-2008CG00422

PATIENT
  Age: 21171 Day
  Sex: Male

DRUGS (3)
  1. TENORMIN [Suspect]
     Route: 048
  2. ENBREL [Suspect]
     Indication: ANKYLOSING SPONDYLITIS
     Route: 058
     Dates: start: 20070501, end: 20080101
  3. TRIAMTERENE AND HYDROCHLOROTHIAZIDE [Suspect]
     Route: 048

REACTIONS (1)
  - CYTOLYTIC HEPATITIS [None]
